FAERS Safety Report 5340039-5 (Version None)
Quarter: 2007Q2

REPORT INFORMATION
  Report Type: 
  Country: None (occurrence: None)
  Receive Date: 20070405
  Receipt Date: 20061107
  Transmission Date: 20071010
  Serious: Yes (Other)
  Sender: FDA-Public Use
  Company Number: US200611001960

PATIENT
  Age: 32 Year
  Sex: Female

DRUGS (2)
  1. CYMBALTA [Suspect]
     Dosage: 60 MG
     Dates: start: 20050910, end: 20050915
  2. PAXIL [Concomitant]

REACTIONS (5)
  - GASTROINTESTINAL PAIN [None]
  - HEADACHE [None]
  - NERVOUSNESS [None]
  - SEROTONIN SYNDROME [None]
  - TREMOR [None]
